FAERS Safety Report 21905467 (Version 1)
Quarter: 2023Q1

REPORT INFORMATION
  Report Type: Spontaneous
  Country: ES (occurrence: ES)
  Receive Date: 20230124
  Receipt Date: 20230124
  Transmission Date: 20230418
  Serious: Yes (Other)
  Sender: FDA-Public Use
  Company Number: ES-FreseniusKabi-FK202300954

PATIENT
  Age: 29 Year
  Sex: Male

DRUGS (4)
  1. CYTARABINE [Suspect]
     Active Substance: CYTARABINE
     Indication: Chemotherapy
     Dosage: BEA REGIMEN CONDITIONING
  2. BUSULFAN [Suspect]
     Active Substance: BUSULFAN
     Indication: Chemotherapy
     Dosage: BEA REGIMEN CONDITIONING
  3. ETOPOSIDE [Suspect]
     Active Substance: ETOPOSIDE
     Indication: Chemotherapy
     Dosage: BEA REGIMEN CONDITIONING
  4. CARMUSTINE [Suspect]
     Active Substance: CARMUSTINE
     Indication: Chemotherapy
     Dosage: BEA REGIMEN CONDITIONING

REACTIONS (1)
  - Venoocclusive liver disease [Recovering/Resolving]
